FAERS Safety Report 10760837 (Version 3)
Quarter: 2015Q3

REPORT INFORMATION
  Report Type: Spontaneous
  Country: US (occurrence: US)
  Receive Date: 20150204
  Receipt Date: 20150917
  Transmission Date: 20151125
  Serious: Yes (Other)
  Sender: FDA-Public Use
  Company Number: US-SA-2015SA012587

PATIENT
  Age: 41 Year
  Sex: Female
  Weight: 63.6 kg

DRUGS (33)
  1. SINGULAIR [Concomitant]
     Active Substance: MONTELUKAST SODIUM
     Route: 048
     Dates: start: 20150716
  2. PREDNISONE. [Concomitant]
     Active Substance: PREDNISONE
     Route: 048
     Dates: start: 20131014
  3. ZITHROMAX [Concomitant]
     Active Substance: AZITHROMYCIN DIHYDRATE
     Route: 048
     Dates: start: 20131014
  4. PAXIL [Concomitant]
     Active Substance: PAROXETINE HYDROCHLORIDE
     Route: 048
     Dates: start: 20121101
  5. ALPRAZOLAM. [Concomitant]
     Active Substance: ALPRAZOLAM
     Route: 048
     Dates: start: 20140208
  6. FABRAZYME [Suspect]
     Active Substance: AGALSIDASE BETA
     Indication: LIPIDOSIS
     Route: 042
     Dates: start: 20120806
  7. FABRAZYME [Suspect]
     Active Substance: AGALSIDASE BETA
     Indication: LIPIDOSIS
     Route: 042
     Dates: start: 20120806
  8. NORCO [Concomitant]
     Active Substance: ACETAMINOPHEN\HYDROCODONE BITARTRATE
     Route: 048
     Dates: start: 20140930
  9. METOPROLOL [Concomitant]
     Active Substance: METOPROLOL
     Route: 048
     Dates: start: 20150309
  10. LAMICTAL [Concomitant]
     Active Substance: LAMOTRIGINE
     Route: 048
     Dates: start: 20150113
  11. AMOXICILLIN. [Concomitant]
     Active Substance: AMOXICILLIN
     Route: 048
     Dates: start: 20141126
  12. ACETAMINOPHEN. [Concomitant]
     Active Substance: ACETAMINOPHEN
     Indication: PREMEDICATION
     Route: 048
     Dates: start: 20150824
  13. ZYRTEC [Concomitant]
     Active Substance: CETIRIZINE HYDROCHLORIDE
     Route: 048
     Dates: start: 20121105
  14. OMEPRAZOLE. [Concomitant]
     Active Substance: OMEPRAZOLE
     Route: 048
     Dates: start: 20140208
  15. PRISTIQ EXTENDED RELEASE [Concomitant]
     Active Substance: DESVENLAFAXINE SUCCINATE
     Route: 048
     Dates: start: 20150714
  16. FABRAZYME [Suspect]
     Active Substance: AGALSIDASE BETA
     Indication: LIPIDOSIS
     Route: 042
     Dates: start: 20120806
  17. ONDANSETRON [Concomitant]
     Active Substance: ONDANSETRON
     Dates: start: 20150113
  18. SODIUM CHLORIDE. [Concomitant]
     Active Substance: SODIUM CHLORIDE
     Route: 042
     Dates: start: 20150824
  19. SULFAMETHOXAZOLE [Concomitant]
     Active Substance: SULFAMETHOXAZOLE
     Route: 048
     Dates: start: 20150127
  20. LEVOFLOXACIN. [Concomitant]
     Active Substance: LEVOFLOXACIN
     Route: 048
     Dates: start: 20150113
  21. EPINEPHRINE. [Concomitant]
     Active Substance: EPINEPHRINE
     Indication: ANAPHYLACTIC REACTION
     Route: 030
     Dates: start: 20150824
  22. FABRAZYME [Suspect]
     Active Substance: AGALSIDASE BETA
     Indication: LIPIDOSIS
     Route: 042
     Dates: start: 20120806
  23. DIPHENHYDRAMINE. [Concomitant]
     Active Substance: DIPHENHYDRAMINE
     Indication: PREMEDICATION
     Route: 048
     Dates: start: 20150824
  24. NORMAL SALINE [Concomitant]
     Active Substance: SODIUM CHLORIDE
     Indication: FLUSHING
     Route: 042
     Dates: start: 20150824
  25. SOLU-MEDROL [Concomitant]
     Active Substance: METHYLPREDNISOLONE SODIUM SUCCINATE
     Indication: ANAPHYLACTIC REACTION
     Route: 042
     Dates: start: 20150824
  26. MUCINEX [Concomitant]
     Active Substance: GUAIFENESIN
     Dosage: MUCINEX COLD LIQUID
     Route: 048
     Dates: start: 20121101
  27. LAMOTRIGINE. [Concomitant]
     Active Substance: LAMOTRIGINE
     Route: 048
     Dates: start: 20150714
  28. SPIRONOLACTONE. [Concomitant]
     Active Substance: SPIRONOLACTONE
     Route: 048
     Dates: start: 20150309
  29. WELLBUTRIN [Concomitant]
     Active Substance: BUPROPION HYDROCHLORIDE
     Route: 048
     Dates: start: 20141106
  30. NABUMETONE. [Concomitant]
     Active Substance: NABUMETONE
     Route: 048
     Dates: start: 20140930
  31. PROMETHAZINE [Concomitant]
     Active Substance: PROMETHAZINE\PROMETHAZINE HYDROCHLORIDE
     Route: 048
     Dates: start: 20140930
  32. BACTRIM [Concomitant]
     Active Substance: SULFAMETHOXAZOLE\TRIMETHOPRIM
  33. CEFUROXIME. [Concomitant]
     Active Substance: CEFUROXIME
     Route: 048
     Dates: start: 20140603

REACTIONS (3)
  - Sinusitis [Not Recovered/Not Resolved]
  - Clostridium difficile infection [Unknown]
  - Cardiac disorder [Not Recovered/Not Resolved]
